FAERS Safety Report 8614090-3 (Version None)
Quarter: 2012Q3

REPORT INFORMATION
  Report Type: 
  Country: None (occurrence: None)
  Receive Date: 20120823
  Receipt Date: 20120817
  Transmission Date: 20120928
  Serious: No
  Sender: FDA-Public Use
  Company Number: US-PFIZER INC-2012203362

PATIENT
  Age: 29 Year
  Sex: Female

DRUGS (5)
  1. LEVAQUIN [Suspect]
     Dosage: UNK
  2. DOXYCYCLINE HCL [Suspect]
     Dosage: UNK
  3. CODEINE SULFATE [Suspect]
     Dosage: UNK
  4. ERYC [Suspect]
     Dosage: UNK
  5. CIPROFLOXACIN [Suspect]
     Dosage: UNK

REACTIONS (1)
  - DRUG HYPERSENSITIVITY [None]
